FAERS Safety Report 9148876 (Version 11)
Quarter: 2014Q2

REPORT INFORMATION
  Report Type: Spontaneous
  Country: US (occurrence: US)
  Receive Date: 20130308
  Receipt Date: 20140505
  Transmission Date: 20141212
  Serious: Yes (Hospitalization, Other)
  Sender: FDA-Public Use
  Company Number: US-JNJFOC-20130300168

PATIENT
  Age: 31 Year
  Sex: Female
  Weight: 56.25 kg

DRUGS (3)
  1. TYLENOL REGULAR STRENGTH [Suspect]
     Indication: TOOTHACHE
     Dosage: 2-3 PILLS SEVERAL TIMES/DAY
     Route: 048
     Dates: start: 20110520, end: 20110527
  2. TYLENOL REGULAR STRENGTH [Suspect]
     Indication: MIGRAINE
     Dosage: 2-3 PILLS SEVERAL TIMES/DAY
     Route: 048
     Dates: start: 20110520, end: 20110527
  3. TYLENOL PM [Suspect]
     Indication: INSOMNIA
     Dosage: 2-3 PILLS IN THE EVENING
     Route: 065
     Dates: start: 20110520, end: 20110527

REACTIONS (7)
  - Hepatitis [Unknown]
  - Acute hepatic failure [Recovering/Resolving]
  - Overdose [Recovering/Resolving]
  - Dehydration [Unknown]
  - Coagulopathy [Unknown]
  - Intussusception [Recovered/Resolved]
  - Transaminases increased [Recovering/Resolving]
